FAERS Safety Report 18827534 (Version 1)
Quarter: 2021Q1

REPORT INFORMATION
  Report Type: Other
  Country: GB (occurrence: GB)
  Receive Date: 20210202
  Receipt Date: 20210202
  Transmission Date: 20210419
  Serious: Yes (Life-Threatening, Hospitalization, Other)
  Sender: FDA-Public Use
  Company Number: GB-CELLTRION INC.-2021GB001135

PATIENT

DRUGS (23)
  1. AMITRIPTYLINE [Concomitant]
     Active Substance: AMITRIPTYLINE
     Dosage: 50 MG ON (1 AT NIGHT)
  2. IVABRADINE [Concomitant]
     Active Substance: IVABRADINE
     Dosage: 5 MG BD (ONE TO BE TAKEN TWICE A DAY)
  3. PHENYTOIN SODIUM. [Concomitant]
     Active Substance: PHENYTOIN SODIUM
     Dosage: 300 MG ONE TO BE TAKEN AT NIGHT
  4. IRON ISOMALTOSIDE 1000 [Concomitant]
     Active Substance: IRON ISOMALTOSIDE 1000
     Dosage: 200 MG EVERY 2 WEEKS (500MG/5ML SOLUTION FOR INJECTION VIALS)
     Route: 042
     Dates: start: 20200430
  5. RITUXIMAB (UNKNOWN) [Suspect]
     Active Substance: RITUXIMAB
     Indication: CENTRAL NERVOUS SYSTEM LYMPHOMA
     Dosage: UNKNOWN (COMPLETED RITUXIMAB ? SEIZURES SINCE THEN)
  6. DOXAZOSIN [Concomitant]
     Active Substance: DOXAZOSIN MESYLATE
     Dosage: 4 MG BD MWF, 6MG BD TTSS (ONE TO BE TAKEN TWICE A DAY (TOTAL DOSE 4MG TWICE DAILY ON MON, WEDS, FRI
  7. LEVETIRACETAM. [Concomitant]
     Active Substance: LEVETIRACETAM
     Dosage: 500 MG BD (ONE TO BE TAKEN TWICE A DAY)
  8. AMLODIPINE [Concomitant]
     Active Substance: AMLODIPINE BESYLATE
     Dosage: 5 MG OD (ONE TO BE TAKEN EACH DAY)
  9. DEXAMETHASONE. [Concomitant]
     Active Substance: DEXAMETHASONE
     Dosage: 2 MG OM (TAKE ONE IN THE MORNING)
     Route: 048
  10. OMEPRAZOLE. [Concomitant]
     Active Substance: OMEPRAZOLE
     Dosage: 20 MG BD (ONE TO BE TAKEN TWICE A DAY)
  11. ATORVASTATIN [Concomitant]
     Active Substance: ATORVASTATIN
     Dosage: 40 MG OD (1 IN THE EVENING)
  12. PHENYTOIN. [Concomitant]
     Active Substance: PHENYTOIN
     Dosage: 500 MG ON
     Route: 048
  13. DARBEPOETIN ALFA [Concomitant]
     Active Substance: DARBEPOETIN ALFA
     Dosage: 60MICROGRAMS/0.3ML SOLUTION FOR INJECTION PRE?FILLED DISPOSABLE DEVICES WEEKLY ON DIALYSIS 0 PRE?FIL
     Dates: start: 20200430
  14. ALLOPURINOL. [Concomitant]
     Active Substance: ALLOPURINOL
     Dosage: 100 MG OD (ONE TO BE TAKEN EACH DAY)
     Route: 048
  15. CLOBAZAM. [Concomitant]
     Active Substance: CLOBAZAM
     Dosage: 10 MG ON (ONE TO BE TAKEN AT NIGHT)
  16. ROPINIROLE. [Concomitant]
     Active Substance: ROPINIROLE
     Dosage: 500 MICROGRAM ON (TAKE ONE AT NIGHT) 28 TABLET
  17. CREON [Concomitant]
     Active Substance: PANCRELIPASE AMYLASE\PANCRELIPASE LIPASE\PANCRELIPASE PROTEASE
     Dosage: 25000 GASTRO?RESISTANT CAPSULES TAKE THREE CAPSULES THREE TIMES DAILY
  18. ALFACALCIDOL [Concomitant]
     Active Substance: ALFACALCIDOL
     Dosage: 500 NANOGRAM OD (1 EVERY DAY)
     Route: 050
  19. DOCUSATE [Concomitant]
     Active Substance: DOCUSATE
     Dosage: 100 MG ALT DAYS (ONE ON ALTERNATE MORNINGS)
  20. SEVELAMER [Concomitant]
     Active Substance: SEVELAMER
     Dosage: 800 MG TDS (ONE TO BE TAKEN THREE TIMES A DAY WITH FOOD 84 TABLET)
  21. BISOPROLOL [Concomitant]
     Active Substance: BISOPROLOL
     Dosage: 12.5 MG OM (1 EVERY MORNING)
  22. COCODAMOL [Concomitant]
     Active Substance: ACETAMINOPHEN\CODEINE PHOSPHATE
     Indication: PAIN
     Dosage: 30MG/500MG TABLETS ONE OR TWO FOUR TIMES A DAY WHEN REQUIRED FOR PAIN
  23. SODIUM BICARBONATE. [Concomitant]
     Active Substance: SODIUM BICARBONATE
     Dosage: 500 MG, TWO TO BE TAKEN THREE TIMES A DAY

REACTIONS (1)
  - Seizure [Unknown]
